FAERS Safety Report 22033596 (Version 1)
Quarter: 2023Q1

REPORT INFORMATION
  Report Type: Spontaneous
  Country: US (occurrence: None)
  Receive Date: 20230222
  Receipt Date: 20230222
  Transmission Date: 20230418
  Serious: Yes (Hospitalization, Other)
  Sender: FDA-Public Use
  Company Number: None

PATIENT
  Age: 66 Year
  Sex: Female
  Weight: 51.3 kg

DRUGS (1)
  1. CIMZIA [Suspect]
     Active Substance: CERTOLIZUMAB PEGOL
     Indication: Psoriatic arthropathy
     Dates: start: 20221011

REACTIONS (5)
  - Psoriasis [None]
  - Abscess neck [None]
  - Staphylococcal infection [None]
  - Skin disorder [None]
  - Abscess [None]

NARRATIVE: CASE EVENT DATE: 20221011
